FAERS Safety Report 22748421 (Version 3)
Quarter: 2023Q4

REPORT INFORMATION
  Report Type: Report from Study
  Country: FR (occurrence: FR)
  Receive Date: 20230725
  Receipt Date: 20231024
  Transmission Date: 20240109
  Serious: Yes (Hospitalization, Other)
  Sender: FDA-Public Use
  Company Number: FR-BAXTER-2023BAX026025

PATIENT
  Age: 56 Year
  Sex: Female
  Weight: 43 kg

DRUGS (25)
  1. DOXORUBICIN HYDROCHLORIDE [Suspect]
     Active Substance: DOXORUBICIN HYDROCHLORIDE
     Indication: Diffuse large B-cell lymphoma
     Dosage: 68.5 MG, EVERY 3 WEEKS
     Route: 042
     Dates: start: 20230620
  2. RITUXIMAB [Suspect]
     Active Substance: RITUXIMAB
     Indication: Diffuse large B-cell lymphoma
     Dosage: 573.75 MG, EVERY 3 WEEKS
     Route: 042
     Dates: start: 20230620
  3. VINCRISTINE SULFATE [Suspect]
     Active Substance: VINCRISTINE SULFATE
     Indication: Diffuse large B-cell lymphoma
     Dosage: 1.92 MG, EVERY 3 WEEKS
     Route: 042
     Dates: start: 20230620
  4. PREDNISONE [Suspect]
     Active Substance: PREDNISONE
     Indication: Diffuse large B-cell lymphoma
     Dosage: DAY 1-5 CYCLE 1-6, EVERY 1 DAYS
     Route: 048
     Dates: start: 20230530, end: 20230601
  5. PREDNISONE [Suspect]
     Active Substance: PREDNISONE
     Dosage: DOSE ADJUSTED REASON: ADMINISTRATION ERROR, EVERY 1 DAYS
     Route: 048
     Dates: start: 20230602, end: 20230603
  6. PREDNISONE [Suspect]
     Active Substance: PREDNISONE
     Dosage: DAY 1-5 CYCLE 1-6, EVERY 1 DAYS
     Route: 048
     Dates: start: 20230620
  7. CYCLOPHOSPHAMIDE [Suspect]
     Active Substance: CYCLOPHOSPHAMIDE
     Indication: Diffuse large B-cell lymphoma
     Dosage: 1027.5 MG, EVERY 3 WEEKS
     Route: 065
     Dates: start: 20230620
  8. EPCORITAMAB [Suspect]
     Active Substance: EPCORITAMAB
     Indication: Diffuse large B-cell lymphoma
     Dosage: PRIMING DOSE, TOTAL
     Route: 058
     Dates: start: 20230531, end: 20230531
  9. EPCORITAMAB [Suspect]
     Active Substance: EPCORITAMAB
     Dosage: INTERMEDIATE DOSE, TOTAL
     Route: 058
     Dates: start: 20230606, end: 20230606
  10. EPCORITAMAB [Suspect]
     Active Substance: EPCORITAMAB
     Dosage: FULL DOSE, EVERY 1 WEEKS
     Route: 058
     Dates: start: 20230613
  11. ATOVAQUONE [Concomitant]
     Active Substance: ATOVAQUONE
     Indication: Infection prophylaxis
     Dosage: 5 ML, 2X/DAY
     Route: 065
     Dates: start: 20230530
  12. PANTOPRAZOLE BLUEFISH [PANTOPRAZOLE SODIUM SESQUIHYDRATE] [Concomitant]
     Indication: Gastrooesophageal reflux prophylaxis
     Dosage: 40 MG, 2X/DAY
     Route: 065
     Dates: start: 20230522
  13. POLARAMINE [Concomitant]
     Active Substance: DEXCHLORPHENIRAMINE MALEATE
     Indication: Premedication
     Dosage: 5 MG, EVERY 3 WEEKS
     Route: 065
     Dates: start: 20230530, end: 20230627
  14. SODIUM BICARBONATE [Concomitant]
     Active Substance: SODIUM BICARBONATE
     Indication: Prophylaxis
     Dosage: 6 U, 6 PER DAY
     Route: 065
     Dates: start: 20230530
  15. ACETAMINOPHEN [Concomitant]
     Active Substance: ACETAMINOPHEN
     Indication: Premedication
     Dosage: 1000 MG, EVERY 3 WEEKS
     Route: 065
     Dates: start: 20230530
  16. VALACYCLOVIR HYDROCHLORIDE [Concomitant]
     Active Substance: VALACYCLOVIR HYDROCHLORIDE
     Indication: Infection prophylaxis
     Dosage: 500 MG, 2X/DAY
     Route: 065
     Dates: start: 20230530
  17. AMOXICILLIN SODIUM [Concomitant]
     Active Substance: AMOXICILLIN SODIUM
     Indication: Prophylaxis
     Dosage: 1 DF (SACHET), DAILY
     Route: 065
     Dates: start: 20230530, end: 20230605
  18. FILGRASTIM [Concomitant]
     Active Substance: FILGRASTIM
     Indication: Prophylaxis
     Dosage: 30000 IU, 1X/DAY
     Route: 065
     Dates: start: 20230625, end: 20230628
  19. POTASSIUM CHLORIDE [Concomitant]
     Active Substance: POTASSIUM CHLORIDE
     Indication: Hypokalaemia
     Dosage: 5 TABLET ONCE
     Route: 065
     Dates: start: 20230630, end: 20230630
  20. POTASSIUM CHLORIDE [Concomitant]
     Active Substance: POTASSIUM CHLORIDE
     Dosage: 4 DOSAGE FORM, EVERY 1 DAYS
     Route: 065
     Dates: start: 20230701, end: 20230702
  21. PIPERACILLIN [Concomitant]
     Active Substance: PIPERACILLIN
     Indication: Infection prophylaxis
     Dosage: 4 G ONCE
     Route: 065
     Dates: start: 20230629, end: 20230629
  22. PIPERACILLIN [Concomitant]
     Active Substance: PIPERACILLIN
     Dosage: 8 G, 2X/DAY
     Route: 065
     Dates: start: 20230630, end: 20230630
  23. PIPERACILLIN [Concomitant]
     Active Substance: PIPERACILLIN
     Dosage: 4 G, 2X/DAY
     Route: 065
     Dates: start: 20230701
  24. CEFOTAXIME [Concomitant]
     Active Substance: CEFOTAXIME SODIUM
     Indication: Infection prophylaxis
     Dosage: 2 G, 2X/DAY
     Route: 065
     Dates: start: 20230629, end: 20230629
  25. FUNGIZONE [Concomitant]
     Active Substance: AMPHOTERICIN B
     Indication: Prophylaxis
     Dosage: 3, 3/DAYS
     Route: 065
     Dates: start: 20230620

REACTIONS (1)
  - Febrile neutropenia [Recovered/Resolved]

NARRATIVE: CASE EVENT DATE: 20230628
